FAERS Safety Report 10709640 (Version 3)
Quarter: 2015Q1

REPORT INFORMATION
  Report Type: Spontaneous
  Country: DE (occurrence: DE)
  Receive Date: 20150114
  Receipt Date: 20150331
  Transmission Date: 20150721
  Serious: Yes (Other)
  Sender: FDA-Public Use
  Company Number: PHHY2015DE002651

PATIENT
  Sex: Male

DRUGS (2)
  1. LEPONEX [Suspect]
     Active Substance: CLOZAPINE
     Indication: EPILEPSY
  2. LEPONEX [Suspect]
     Active Substance: CLOZAPINE
     Indication: SCHIZOPHRENIA
     Dosage: 3 DF, QD
     Route: 048
     Dates: start: 200901, end: 201407

REACTIONS (7)
  - Micturition urgency [Recovered/Resolved]
  - Abdominal pain lower [Recovered/Resolved]
  - Cystitis [Recovered/Resolved]
  - Antipsychotic drug level above therapeutic [Recovered/Resolved]
  - Benign prostatic hyperplasia [Recovered/Resolved]
  - Product use issue [Unknown]
  - Constipation [Recovered/Resolved]
